FAERS Safety Report 14350888 (Version 6)
Quarter: 2018Q4

REPORT INFORMATION
  Report Type: Spontaneous
  Country: FR (occurrence: FR)
  Receive Date: 20180104
  Receipt Date: 20181008
  Transmission Date: 20190204
  Serious: Yes (Hospitalization, Other)
  Sender: FDA-Public Use
  Company Number: FR-GLAXOSMITHKLINE-FR2017201094

PATIENT
  Age: 82 Year
  Sex: Female
  Weight: 64 kg

DRUGS (14)
  1. ATROPA BELLADONNA EXTRACT [Suspect]
     Active Substance: ATROPA BELLADONNA\HOMEOPATHICS
     Indication: PAIN
     Dosage: 1 DF, PRN
     Route: 048
  2. LATANOPROST. [Suspect]
     Active Substance: LATANOPROST
     Indication: GLAUCOMA
     Dosage: 1 DF, QD
     Route: 047
     Dates: end: 20171210
  3. HYALGAN [Suspect]
     Active Substance: HYALURONATE SODIUM
     Dosage: 2 ML, CYCLICAL
     Route: 014
  4. AZOPT [Suspect]
     Active Substance: BRINZOLAMIDE
     Indication: GLAUCOMA
     Dosage: 1 DF, QD
     Route: 047
     Dates: end: 20171210
  5. RHINOMAXIL [Suspect]
     Active Substance: BECLOMETHASONE DIPROPIONATE
     Dosage: UNK
     Route: 045
     Dates: end: 20171210
  6. RHINOMAXIL [Suspect]
     Active Substance: BECLOMETHASONE DIPROPIONATE
     Indication: PRODUCT USED FOR UNKNOWN INDICATION
     Dosage: UNK
     Route: 045
     Dates: end: 20171210
  7. HYALGAN [Suspect]
     Active Substance: HYALURONATE SODIUM
     Indication: OSTEOARTHRITIS
     Dosage: 2 ML, CYCLICAL
     Route: 014
     Dates: end: 20171206
  8. LAMALINE (ACETAMINOPHEN\CAFFEINE\OPIUM) [Suspect]
     Active Substance: ACETAMINOPHEN\CAFFEINE\OPIUM
     Dosage: 1 DF, PRN ; AS NECESSARY
     Route: 048
  9. VOLTARENE EMULGEL [Suspect]
     Active Substance: DICLOFENAC DIETHYLAMINE
     Indication: PAIN
     Dosage: 2.5 G, QD
     Route: 003
     Dates: end: 20171210
  10. MONOPROST [Suspect]
     Active Substance: LATANOPROST
     Indication: GLAUCOMA
     Dosage: UNK
     Route: 047
     Dates: end: 20170210
  11. DESLORATADINE. [Suspect]
     Active Substance: DESLORATADINE
     Indication: PRODUCT USED FOR UNKNOWN INDICATION
     Dosage: 5 MG, QD
     Route: 048
     Dates: end: 20171210
  12. LAMALINE (ACETAMINOPHEN\CAFFEINE\OPIUM) [Suspect]
     Active Substance: ACETAMINOPHEN\CAFFEINE\OPIUM
     Indication: PAIN
     Dosage: 1 DF, PRN ; AS NECESSARY
     Route: 048
  13. BECLOMETASONE DIPROPIONATE [Suspect]
     Active Substance: BECLOMETHASONE DIPROPIONATE
     Indication: PRODUCT USED FOR UNKNOWN INDICATION
     Dosage: 4 DF, QD
     Route: 045
     Dates: end: 20171210
  14. RABEPRAZOLE [Suspect]
     Active Substance: RABEPRAZOLE
     Indication: PRODUCT USED FOR UNKNOWN INDICATION
     Dosage: UNK
     Route: 048
     Dates: end: 20171210

REACTIONS (1)
  - Pancreatitis acute [Recovering/Resolving]

NARRATIVE: CASE EVENT DATE: 20171209
